FAERS Safety Report 7677703-9 (Version None)
Quarter: 2011Q3

REPORT INFORMATION
  Report Type: 
  Country: None (occurrence: None)
  Receive Date: 20110811
  Receipt Date: 20110803
  Transmission Date: 20111222
  Serious: Yes (Other)
  Sender: FDA-Public Use
  Company Number: PHEH2011US00611

PATIENT
  Sex: Female

DRUGS (4)
  1. RECLAST [Suspect]
     Dosage: UNK
     Route: 042
  2. RECLAST [Suspect]
     Dosage: UNK
     Route: 042
  3. PROLIA [Suspect]
     Route: 042
  4. RECLAST [Suspect]
     Dosage: UNK
     Route: 042

REACTIONS (3)
  - RASH GENERALISED [None]
  - MULTIPLE FRACTURES [None]
  - HYPERSENSITIVITY [None]
